FAERS Safety Report 8616261-9 (Version None)
Quarter: 2012Q3

REPORT INFORMATION
  Report Type: 
  Country: None (occurrence: None)
  Receive Date: 20120823
  Receipt Date: 20100602
  Transmission Date: 20120928
  Serious: Yes (Death)
  Sender: FDA-Public Use
  Company Number: PHHY2010NL094581

PATIENT
  Age: 65 Year
  Sex: Female

DRUGS (1)
  1. METOPROLOL TARTRATE [Suspect]
     Indication: LONG QT SYNDROME
     Dosage: 150 MG, DAILY

REACTIONS (1)
  - SUDDEN CARDIAC DEATH [None]
